FAERS Safety Report 18356992 (Version 1)
Quarter: 2020Q4

REPORT INFORMATION
  Report Type: Report from Study
  Country: CA (occurrence: CA)
  Receive Date: 20201007
  Receipt Date: 20201007
  Transmission Date: 20210114
  Serious: Yes (Other)
  Sender: FDA-Public Use
  Company Number: CA-JNJFOC-20200921655

PATIENT
  Age: 66 Year
  Sex: Female
  Weight: 57.4 kg

DRUGS (1)
  1. REMICADE [Suspect]
     Active Substance: INFLIXIMAB
     Indication: PYODERMA GANGRENOSUM
     Dosage: LAST INFUSION GIVEN ON 13-JUL-2020
     Route: 042

REACTIONS (3)
  - Tremor [Unknown]
  - Pyoderma gangrenosum [Not Recovered/Not Resolved]
  - Diarrhoea [Unknown]

NARRATIVE: CASE EVENT DATE: 20200908
